FAERS Safety Report 12975623 (Version 1)
Quarter: 2016Q4

REPORT INFORMATION
  Report Type: Spontaneous
  Country: GB (occurrence: GB)
  Receive Date: 20161125
  Receipt Date: 20161125
  Transmission Date: 20170207
  Serious: Yes (Other)
  Sender: FDA-Public Use
  Company Number: GB-JNJFOC-20161124329

PATIENT
  Age: 59 Year
  Sex: Female
  Weight: 74 kg

DRUGS (11)
  1. XARELTO [Suspect]
     Active Substance: RIVAROXABAN
     Indication: PRODUCT USED FOR UNKNOWN INDICATION
     Route: 048
     Dates: start: 20160627
  2. FROVATRIPTAN. [Concomitant]
     Active Substance: FROVATRIPTAN
     Dates: start: 20160119
  3. LOSARTAN. [Concomitant]
     Active Substance: LOSARTAN
     Dates: start: 20160119
  4. OMEPRAZOLE. [Concomitant]
     Active Substance: OMEPRAZOLE
     Dosage: 1 DF, QD
     Dates: start: 20160119
  5. RISEDRONATE SODIUM. [Concomitant]
     Active Substance: RISEDRONATE SODIUM
     Dosage: 1 DF, OW
     Dates: start: 20160119
  6. NAPROXEN. [Concomitant]
     Active Substance: NAPROXEN
     Dosage: 1DF, BID
     Dates: start: 20160119
  7. SYMBICORT [Concomitant]
     Active Substance: BUDESONIDE\FORMOTEROL FUMARATE DIHYDRATE
     Dosage: 2 DF, BID
     Route: 055
     Dates: start: 20160119
  8. ESTRADERM [Concomitant]
     Active Substance: ESTRADIOL
     Dates: start: 20160119
  9. PROGESTERONE. [Concomitant]
     Active Substance: PROGESTERONE
     Dosage: 1 DF, BID
     Dates: start: 20160119
  10. SULFASALAZINE. [Concomitant]
     Active Substance: SULFASALAZINE
     Dosage: 3 DF, BID
     Dates: start: 20160119
  11. ZAPAIN [Concomitant]
     Active Substance: ACETAMINOPHEN\CODEINE PHOSPHATE
     Dosage: AS NECESSARY
     Dates: start: 20160119

REACTIONS (1)
  - Tinnitus [Recovered/Resolved]

NARRATIVE: CASE EVENT DATE: 20160701
